FAERS Safety Report 6525841-6 (Version None)
Quarter: 2010Q1

REPORT INFORMATION
  Report Type: 
  Country: None (occurrence: None)
  Receive Date: 20100104
  Receipt Date: 20091224
  Transmission Date: 20100710
  Serious: Yes (Death)
  Sender: FDA-Public Use
  Company Number: B0619807A

PATIENT
  Sex: Male
  Weight: 80 kg

DRUGS (5)
  1. ZANAMIVIR [Suspect]
     Indication: H1N1 INFLUENZA
     Route: 042
     Dates: start: 20091118, end: 20091123
  2. ZANAMIVIR [Suspect]
     Dosage: 2BLS TWICE PER DAY
     Route: 055
     Dates: start: 20091117, end: 20091117
  3. TACROLIMUS [Suspect]
     Dosage: 2.5MG TWICE PER DAY
     Route: 048
     Dates: start: 20090101, end: 20091120
  4. TAMIFLU [Concomitant]
  5. ANTIBIOTICS [Concomitant]

REACTIONS (1)
  - RESPIRATORY FAILURE [None]
